FAERS Safety Report 13081633 (Version 1)
Quarter: 2017Q1

REPORT INFORMATION
  Report Type: Spontaneous
  Country: US (occurrence: US)
  Receive Date: 20170103
  Receipt Date: 20170103
  Transmission Date: 20170428
  Serious: No
  Sender: FDA-Public Use
  Company Number: US-BAYER-2016-232438

PATIENT
  Age: 69 Year
  Sex: Male

DRUGS (2)
  1. XOFIGO [Suspect]
     Active Substance: RADIUM RA-223 DICHLORIDE
  2. XTANDI [Suspect]
     Active Substance: ENZALUTAMIDE
     Dosage: 160 MG, QD
     Route: 048

REACTIONS (2)
  - Pain [None]
  - Nausea [None]
